FAERS Safety Report 20862065 (Version 1)
Quarter: 2022Q2

REPORT INFORMATION
  Report Type: Spontaneous
  Country: RU (occurrence: RU)
  Receive Date: 20220523
  Receipt Date: 20220523
  Transmission Date: 20220720
  Serious: Yes (Life-Threatening, Hospitalization, Other)
  Sender: FDA-Public Use
  Company Number: RU-BAYER-2022A073276

PATIENT
  Age: 72 Year
  Sex: Female
  Weight: 51 kg

DRUGS (1)
  1. ULTRAVIST [Suspect]
     Active Substance: IOPROMIDE
     Indication: Computerised tomogram pelvis
     Dosage: 100 ML, ONCE
     Route: 042
     Dates: start: 20220420, end: 20220420

REACTIONS (10)
  - Anaphylactic shock [Recovered/Resolved]
  - Loss of consciousness [Recovered/Resolved]
  - Cold sweat [Recovered/Resolved]
  - Pulse absent [Recovered/Resolved]
  - Blood pressure decreased [Recovered/Resolved]
  - Urinary incontinence [Recovered/Resolved]
  - Sopor [Recovered/Resolved]
  - Tongue disorder [Recovered/Resolved]
  - Cyanosis [Recovered/Resolved]
  - Mydriasis [Recovered/Resolved]

NARRATIVE: CASE EVENT DATE: 20220420
